FAERS Safety Report 4796728-4 (Version None)
Quarter: 2005Q3

REPORT INFORMATION
  Report Type: 
  Country: None (occurrence: None)
  Receive Date: 20050916
  Receipt Date: 20041029
  Transmission Date: 20060218
  Serious: Yes (Other)
  Sender: FDA-Public Use
  Company Number: US-JNJFOC-20041100262

PATIENT
  Age: 67 Year
  Sex: Male
  Weight: 108.8633 kg

DRUGS (9)
  1. TOPAMAX [Suspect]
     Indication: PHANTOM PAIN
     Dosage: 25 MG, 2 IN 1 DAY
  2. PERCOCET [Concomitant]
  3. ASPIRIN [Concomitant]
  4. GUAIFENESIN (GUAIFENESIN) [Concomitant]
  5. MULTIVITAMIN [Concomitant]
  6. TRAZODONE (TRAZODONE) [Concomitant]
  7. LISINOPRIL [Concomitant]
  8. NOSE DROPS (NASAL PREDNISONE) DROPS [Concomitant]
  9. CHOLESTEROL MEDICATION (CHOLESTEROL - AND TRIGLYCERIDE REDUCERS) [Concomitant]

REACTIONS (1)
  - WEIGHT DECREASED [None]
